FAERS Safety Report 6626010-1 (Version None)
Quarter: 2010Q1

REPORT INFORMATION
  Report Type: 
  Country: None (occurrence: None)
  Receive Date: 20100310
  Receipt Date: 20100305
  Transmission Date: 20100710
  Serious: Yes (Hospitalization)
  Sender: FDA-Public Use
  Company Number: US-SANOFI-AVENTIS-2010SA008064

PATIENT
  Age: 70 Year
  Sex: Female
  Weight: 72.57 kg

DRUGS (6)
  1. LANTUS [Suspect]
     Indication: TYPE 2 DIABETES MELLITUS
     Dosage: 10-15CC
     Route: 058
  2. SOLOSTAR [Suspect]
     Indication: TYPE 2 DIABETES MELLITUS
  3. GLUCOTROL [Concomitant]
  4. DILTIAZEM HCL [Concomitant]
  5. PHOSLO [Concomitant]
     Dosage: 667 THREE TIMES DAILY
  6. CARVEDILOL [Concomitant]

REACTIONS (1)
  - PNEUMONIA [None]
